FAERS Safety Report 16371260 (Version 1)
Quarter: 2019Q2

REPORT INFORMATION
  Report Type: Report from Study
  Country: None (occurrence: DE)
  Receive Date: 20190530
  Receipt Date: 20190530
  Transmission Date: 20190711
  Serious: Yes (Hospitalization)
  Sender: FDA-Public Use
  Company Number: DE-ABBVIE-19K-062-2797313-00

PATIENT
  Age: 65 Year
  Sex: Female
  Weight: 68 kg

DRUGS (3)
  1. HUMIRA [Suspect]
     Active Substance: ADALIMUMAB
     Indication: RHEUMATOID ARTHRITIS
     Route: 058
     Dates: start: 2012, end: 20190503
  2. METEX [Concomitant]
     Indication: PRODUCT USED FOR UNKNOWN INDICATION
     Route: 048
  3. HUMIRA [Suspect]
     Active Substance: ADALIMUMAB
     Dosage: DOSE INCREASED
     Route: 058
     Dates: start: 20190503

REACTIONS (5)
  - Sensitivity to weather change [Unknown]
  - Nasopharyngitis [Not Recovered/Not Resolved]
  - Rheumatoid arthritis [Unknown]
  - Hand fracture [Recovered/Resolved with Sequelae]
  - Arthritis [Recovering/Resolving]

NARRATIVE: CASE EVENT DATE: 2017
